FAERS Safety Report 5953035-1 (Version None)
Quarter: 2008Q4

REPORT INFORMATION
  Report Type: 
  Country: None (occurrence: None)
  Receive Date: 20081114
  Receipt Date: 20080908
  Transmission Date: 20090506
  Serious: Yes (Other)
  Sender: FDA-Public Use
  Company Number: US-BRISTOL-MYERS SQUIBB COMPANY-14330484

PATIENT
  Age: 26 Year
  Sex: Female

DRUGS (2)
  1. IXEMPRA KIT [Suspect]
     Indication: BREAST CANCER METASTATIC
     Dosage: RECEIVED INFUSIONS ON THREE SEPERATE DATES,WITH EACH INFUSION, SYMPTOMS WERE PRESENT
  2. RADIATION THERAPY [Suspect]

REACTIONS (1)
  - NEURITIS [None]
